FAERS Safety Report 25310299 (Version 2)
Quarter: 2025Q2

REPORT INFORMATION
  Report Type: Spontaneous
  Country: US (occurrence: US)
  Receive Date: 20250514
  Receipt Date: 20250528
  Transmission Date: 20250717
  Serious: Yes (Other)
  Sender: EMCURE PHARMACEUTICALS LTD
  Company Number: US-AVET LIFESCIENCES LTD-2025-AVET-000140

PATIENT

DRUGS (11)
  1. PROPOFOL [Suspect]
     Active Substance: PROPOFOL
     Indication: Product used for unknown indication
     Route: 065
     Dates: start: 20250418
  2. MIDAZOLAM [Concomitant]
     Active Substance: MIDAZOLAM
  3. FENTANYL [Concomitant]
     Active Substance: FENTANYL
  4. HYDROMORPHONE [Concomitant]
     Active Substance: HYDROMORPHONE
  5. ONDANSETRON [Concomitant]
     Active Substance: ONDANSETRON
  6. LIDOCAINE [Concomitant]
     Active Substance: LIDOCAINE
  7. ACETAMINOPHEN [Concomitant]
     Active Substance: ACETAMINOPHEN
  8. CEFAZOLIN [Concomitant]
     Active Substance: CEFAZOLIN
  9. DEXAMETHASONE [Concomitant]
     Active Substance: DEXAMETHASONE
  10. KETOROLAC [Concomitant]
     Active Substance: KETOROLAC TROMETHAMINE
  11. TRANEXAMIC ACID [Concomitant]
     Active Substance: TRANEXAMIC ACID

REACTIONS (1)
  - Drug ineffective [Unknown]
